FAERS Safety Report 17539166 (Version 1)
Quarter: 2020Q1

REPORT INFORMATION
  Report Type: Spontaneous
  Country: US (occurrence: US)
  Receive Date: 20200313
  Receipt Date: 20200313
  Transmission Date: 20200409
  Serious: No
  Sender: FDA-Public Use
  Company Number: US-PFIZER INC-2020110021

PATIENT
  Age: 73 Year

DRUGS (3)
  1. CHANTIX [Suspect]
     Active Substance: VARENICLINE TARTRATE
     Dosage: 0.5 MG, DAILY FOR 3 DAYS
     Route: 048
  2. CHANTIX [Suspect]
     Active Substance: VARENICLINE TARTRATE
     Dosage: 0.5 MG, 2X/DAY FOR 4 DAYS
     Route: 048
  3. CHANTIX [Suspect]
     Active Substance: VARENICLINE TARTRATE
     Dosage: 1 MG, 2X/DAY FOR 30 DAYS
     Route: 048

REACTIONS (2)
  - Peripheral arterial occlusive disease [Unknown]
  - Muscle spasms [Unknown]
